FAERS Safety Report 4560661-3 (Version None)
Quarter: 2005Q1

REPORT INFORMATION
  Report Type: 
  Country: None (occurrence: None)
  Receive Date: 20050121
  Receipt Date: 20050105
  Transmission Date: 20050727
  Serious: Yes (Hospitalization)
  Sender: FDA-Public Use
  Company Number: DSA_25398_2004

PATIENT
  Age: 28 Year
  Sex: Male

DRUGS (6)
  1. LORAZEPAM [Suspect]
     Dosage: 2 MG Q DAY PO
     Route: 048
     Dates: start: 20040701, end: 20040712
  2. RISPERDAL [Suspect]
     Dosage: 6 MG Q DAY PO
     Route: 048
     Dates: start: 20040529, end: 20040616
  3. RISPERDAL [Suspect]
     Dosage: 7 MG Q DAY PO
     Route: 048
     Dates: start: 20040617
  4. RISPERIDONE [Suspect]
     Dosage: 37.5 MG Q2WK IM
     Route: 030
     Dates: start: 20040618, end: 20040702
  5. NOCTAMID [Concomitant]
  6. AKINETON /AUS/ [Concomitant]

REACTIONS (8)
  - ALANINE AMINOTRANSFERASE INCREASED [None]
  - ARTHRALGIA [None]
  - ASPARTATE AMINOTRANSFERASE INCREASED [None]
  - BLOOD CREATINE PHOSPHOKINASE INCREASED [None]
  - BLOOD LACTATE DEHYDROGENASE INCREASED [None]
  - INFECTION [None]
  - MYALGIA [None]
  - WHITE BLOOD CELL COUNT DECREASED [None]
